FAERS Safety Report 17502653 (Version 1)
Quarter: 2020Q1

REPORT INFORMATION
  Report Type: Spontaneous
  Country: US (occurrence: US)
  Receive Date: 20200225
  Receipt Date: 20200225
  Transmission Date: 20200409
  Serious: No
  Sender: FDA-Public Use
  Company Number: None

PATIENT
  Sex: Female

DRUGS (21)
  1. HYDRALAZINE [Concomitant]
     Active Substance: HYDRALAZINE HYDROCHLORIDE
  2. LUMIGAN SOL [Concomitant]
  3. TEIZANIDINE [Concomitant]
  4. METOPROL TAR [Concomitant]
  5. NABUMETONE. [Concomitant]
     Active Substance: NABUMETONE
  6. GABAPENTIN. [Concomitant]
     Active Substance: GABAPENTIN
  7. HYDROCHLOROT [Concomitant]
     Active Substance: HYDROCHLOROTHIAZIDE
  8. LEVEMIR [Concomitant]
     Active Substance: INSULIN DETEMIR
  9. PREDNISONE. [Concomitant]
     Active Substance: PREDNISONE
  10. FLUTICASONE. [Concomitant]
     Active Substance: FLUTICASONE
  11. URSODIOL. [Concomitant]
     Active Substance: URSODIOL
  12. OCALIVA [Suspect]
     Active Substance: OBETICHOLIC ACID
     Indication: PRIMARY BILIARY CHOLANGITIS
     Route: 048
     Dates: start: 20190607
  13. HUMALOG [Concomitant]
     Active Substance: INSULIN LISPRO
  14. AMLOD/OLMESA [Concomitant]
  15. CETRIZINE [Concomitant]
     Active Substance: CETIRIZINE HYDROCHLORIDE
  16. MOMETASONE SPR [Concomitant]
  17. COMBIGAN SOL [Concomitant]
  18. PRIMIDONE. [Concomitant]
     Active Substance: PRIMIDONE
  19. TOPIRAMATE. [Concomitant]
     Active Substance: TOPIRAMATE
  20. ATORAVASTATIN [Concomitant]
     Active Substance: ATORVASTATIN
  21. OMEPRAZOLE. [Concomitant]
     Active Substance: OMEPRAZOLE

REACTIONS (1)
  - Taste disorder [None]
